FAERS Safety Report 7522377-0 (Version None)
Quarter: 2011Q2

REPORT INFORMATION
  Report Type: 
  Country: None (occurrence: None)
  Receive Date: 20110603
  Receipt Date: 20110520
  Transmission Date: 20111010
  Serious: Yes (Other)
  Sender: FDA-Public Use
  Company Number: BE-ELI_LILLY_AND_COMPANY-BE201104000899

PATIENT
  Age: 81 Year
  Sex: Male
  Weight: 69.5 kg

DRUGS (5)
  1. ASAFLOW [Concomitant]
     Dosage: 80 MG, UNKNOWN
  2. EMCONCOR [Concomitant]
     Dosage: 5 MG, UNKNOWN
  3. EFFEXOR [Concomitant]
     Dosage: 150 MG, UNKNOWN
  4. CYMBALTA [Suspect]
     Indication: DEPRESSION
     Dosage: UNK UNK, QD
     Route: 048
     Dates: start: 20101213, end: 20110101
  5. AMLODIPINE [Concomitant]
     Dosage: 5 MG, UNKNOWN

REACTIONS (1)
  - RENAL FAILURE [None]
